FAERS Safety Report 12381924 (Version 1)
Quarter: 2016Q2

REPORT INFORMATION
  Report Type: Spontaneous
  Country: US (occurrence: None)
  Receive Date: 20160517
  Receipt Date: 20160517
  Transmission Date: 20160815
  Serious: No
  Sender: FDA-Public Use
  Company Number: None

PATIENT
  Age: 55 Year
  Sex: Male

DRUGS (3)
  1. LAMIVUDINE-ZIDOVUDINE [Concomitant]
  2. TYBOST [Suspect]
     Active Substance: COBICISTAT
     Indication: HIV INFECTION
     Route: 048
     Dates: start: 20160422, end: 20160516
  3. PREZISTA [Concomitant]
     Active Substance: DARUNAVIR ETHANOLATE

REACTIONS (3)
  - Faeces discoloured [None]
  - Abnormal faeces [None]
  - Thermal burn [None]

NARRATIVE: CASE EVENT DATE: 20160516
